FAERS Safety Report 23365893 (Version 1)
Quarter: 2024Q1

REPORT INFORMATION
  Report Type: Spontaneous
  Country: US (occurrence: US)
  Receive Date: 20240104
  Receipt Date: 20240104
  Transmission Date: 20240410
  Serious: No
  Sender: FDA-Public Use
  Company Number: US-SA-2019SA014828

PATIENT
  Sex: Female

DRUGS (1)
  1. ZANTAC 150 (RANITIDINE HYDROCHLORIDE) [Suspect]
     Active Substance: RANITIDINE HYDROCHLORIDE
     Indication: Anaphylactic reaction
     Route: 065

REACTIONS (5)
  - Adverse event [Unknown]
  - Off label use [Unknown]
  - Product outer packaging issue [Unknown]
  - Product administration error [Unknown]
  - Product label issue [Unknown]
